FAERS Safety Report 14949051 (Version 1)
Quarter: 2018Q2

REPORT INFORMATION
  Report Type: Spontaneous
  Country: AU (occurrence: AU)
  Receive Date: 20180529
  Receipt Date: 20180529
  Transmission Date: 20180711
  Serious: Yes (Other)
  Sender: FDA-Public Use
  Company Number: AU-PFIZER INC-2018215611

PATIENT
  Age: 19 Year
  Sex: Female

DRUGS (1)
  1. ERAXIS [Suspect]
     Active Substance: ANIDULAFUNGIN
     Indication: OESOPHAGEAL CANDIDIASIS
     Dosage: UNK

REACTIONS (1)
  - Status epilepticus [Unknown]
